FAERS Safety Report 5147859-0 (Version None)
Quarter: 2006Q4

REPORT INFORMATION
  Report Type: 
  Country: None (occurrence: None)
  Receive Date: 20061110
  Receipt Date: 20061031
  Transmission Date: 20070319
  Serious: Yes (Other)
  Sender: FDA-Public Use
  Company Number: FR-AMGEN-UK198798

PATIENT
  Age: 48 Year
  Sex: Female

DRUGS (5)
  1. MIMPARA [Suspect]
     Indication: HYPERPARATHYROIDISM SECONDARY
     Dates: start: 20060701, end: 20061001
  2. LASIX [Suspect]
  3. RENAGEL [Concomitant]
  4. PARIET [Concomitant]
  5. CALCIPRAT [Concomitant]

REACTIONS (4)
  - AMNESIA [None]
  - DIZZINESS [None]
  - HAEMODIALYSIS [None]
  - RHABDOMYOLYSIS [None]
